FAERS Safety Report 5206630-1 (Version None)
Quarter: 2006Q4

REPORT INFORMATION
  Report Type: 
  Country: None (occurrence: None)
  Receive Date: 20061026
  Receipt Date: 20060814
  Transmission Date: 20070319
  Serious: No
  Sender: FDA-Public Use
  Company Number: 2006086021

PATIENT
  Sex: Female

DRUGS (9)
  1. LYRICA [Suspect]
     Indication: NEUROPATHY
     Dosage: 150 MG (50 MG, 3 IN 1 D), ORAL
     Route: 048
     Dates: start: 20060621
  2. SYNTHROID [Concomitant]
  3. NEXIUM [Concomitant]
  4. TAMOXIFEN CITRATE [Concomitant]
  5. LUNESTA [Concomitant]
  6. CALCITRIOL [Concomitant]
  7. FIBERCON (POLYCARBOPHIL CALCIUM) [Concomitant]
  8. ACIDOPHILUS (LACTOBACILLUS ACIDOPHILUS) [Concomitant]
  9. CALTRATE (CALCIUM CARBONATE) [Concomitant]

REACTIONS (4)
  - ERYTHEMA [None]
  - PALMAR-PLANTAR ERYTHRODYSAESTHESIA SYNDROME [None]
  - SKIN EXFOLIATION [None]
  - SWELLING [None]
